FAERS Safety Report 7699002-1 (Version None)
Quarter: 2011Q3

REPORT INFORMATION
  Report Type: 
  Country: None (occurrence: None)
  Receive Date: 20110819
  Receipt Date: 20110808
  Transmission Date: 20111222
  Serious: Yes (Hospitalization)
  Sender: FDA-Public Use
  Company Number: GB-BAUSCH-2011BL005327

PATIENT
  Age: 70 Year
  Sex: Female
  Weight: 66 kg

DRUGS (12)
  1. ALLOPURINOL [Concomitant]
     Indication: GOUT
  2. ASPIRIN [Concomitant]
     Indication: CEREBROVASCULAR ACCIDENT
  3. SIMVASTATIN [Concomitant]
     Indication: BLOOD CHOLESTEROL INCREASED
  4. SLOW-K [Concomitant]
     Indication: BLOOD POTASSIUM DECREASED
  5. OLANZAPINE [Concomitant]
     Indication: DEPRESSION
  6. DEXAMETHASONE [Suspect]
     Indication: MULTIPLE MYELOMA
     Route: 048
     Dates: start: 20110516, end: 20110520
  7. AMLODIPINE [Concomitant]
     Indication: HYPERTENSION
  8. ASPIRIN [Concomitant]
     Indication: ATRIAL FIBRILLATION
  9. VELCADE [Suspect]
     Indication: MULTIPLE MYELOMA
     Route: 042
     Dates: start: 20110516, end: 20110519
  10. DIGOXIN [Concomitant]
     Indication: ATRIAL FIBRILLATION
  11. DULOXETIME HYDROCHLORIDE [Concomitant]
     Indication: DEPRESSION
  12. METOPROLOL SUCCINATE [Concomitant]
     Indication: ATRIAL FIBRILLATION

REACTIONS (2)
  - PALPITATIONS [None]
  - CARDIAC FAILURE CONGESTIVE [None]
